FAERS Safety Report 13999431 (Version 1)
Quarter: 2017Q3

REPORT INFORMATION
  Report Type: Report from Study
  Country: US (occurrence: US)
  Receive Date: 20170922
  Receipt Date: 20170922
  Transmission Date: 20171128
  Serious: Yes (Other)
  Sender: FDA-Public Use
  Company Number: US-ROCHE-1992370

PATIENT

DRUGS (3)
  1. CAPECITABINE. [Suspect]
     Active Substance: CAPECITABINE
     Indication: RENAL CELL CARCINOMA
     Dosage: DAY 1 TO 21 OF A 28 DAY CYCLE
     Route: 048
  2. GEMCITABINE [Suspect]
     Active Substance: GEMCITABINE\GEMCITABINE HYDROCHLORIDE
     Indication: RENAL CELL CARCINOMA
     Dosage: OVER 30 MINUTES ON DAYS 1 AND 15
     Route: 042
  3. BEVACIZUMAB. [Suspect]
     Active Substance: BEVACIZUMAB
     Indication: RENAL CELL CARCINOMA
     Dosage: DAYS 1 AND 15 OF A 28-DAY CYCLE.
     Route: 042

REACTIONS (16)
  - Pain [Unknown]
  - Hyponatraemia [Unknown]
  - Embolism [Unknown]
  - Peripheral sensory neuropathy [Unknown]
  - Headache [Unknown]
  - Neutropenia [Unknown]
  - Diarrhoea [Unknown]
  - Hyperbilirubinaemia [Unknown]
  - Rash [Unknown]
  - Fatigue [Unknown]
  - Hypernatraemia [Unknown]
  - Pain in extremity [Unknown]
  - Peripheral motor neuropathy [Unknown]
  - Hypertension [Unknown]
  - Lymphopenia [Unknown]
  - Leukopenia [Unknown]
